FAERS Safety Report 7049124-3 (Version None)
Quarter: 2010Q4

REPORT INFORMATION
  Report Type: 
  Country: None (occurrence: None)
  Receive Date: 20101007
  Receipt Date: 20100923
  Transmission Date: 20110411
  Serious: Yes (Hospitalization)
  Sender: FDA-Public Use
  Company Number: 015065

PATIENT
  Sex: Female

DRUGS (1)
  1. CIMZIA [Suspect]
     Dosage: UNSPECIFIED SUBCUTANEOUS
     Route: 058

REACTIONS (2)
  - COLECTOMY [None]
  - TREATMENT FAILURE [None]
